FAERS Safety Report 11372992 (Version 1)
Quarter: 2015Q3

REPORT INFORMATION
  Report Type: Spontaneous
  Country: US (occurrence: US)
  Receive Date: 20150811
  Receipt Date: 20150811
  Transmission Date: 20151125
  Serious: No
  Sender: FDA-Public Use
  Company Number: US-ELI_LILLY_AND_COMPANY-US201202000216

PATIENT
  Sex: Male

DRUGS (7)
  1. TOPROL XL [Concomitant]
     Active Substance: METOPROLOL SUCCINATE
  2. TRIAMTERENE. [Concomitant]
     Active Substance: TRIAMTERENE
  3. ADVAIR HFA [Concomitant]
     Active Substance: FLUTICASONE PROPIONATE\SALMETEROL XINAFOATE
  4. ADCIRCA [Suspect]
     Active Substance: TADALAFIL
     Indication: PULMONARY ARTERIAL HYPERTENSION
     Dosage: 20 MG, QD
     Dates: start: 20111219, end: 20111231
  5. ADCIRCA [Suspect]
     Active Substance: TADALAFIL
     Dosage: 40 MG, QD
     Dates: start: 20120101, end: 20120125
  6. ZOCOR [Concomitant]
     Active Substance: SIMVASTATIN
  7. PREDNISONE. [Concomitant]
     Active Substance: PREDNISONE

REACTIONS (1)
  - Blood pressure increased [Unknown]
